FAERS Safety Report 16366909 (Version 1)
Quarter: 2019Q2

REPORT INFORMATION
  Report Type: Spontaneous
  Country: DE (occurrence: DE)
  Receive Date: 20190529
  Receipt Date: 20190529
  Transmission Date: 20190711
  Serious: Yes (Hospitalization, Other)
  Sender: FDA-Public Use
  Company Number: DE-STRIDES ARCOLAB LIMITED-2019SP004420

PATIENT
  Age: 77 Year
  Sex: Male

DRUGS (12)
  1. VANCOMYCIN [Suspect]
     Active Substance: VANCOMYCIN
     Indication: BACTERIAL INFECTION
  2. SIMVASTATIN. [Concomitant]
     Active Substance: SIMVASTATIN
     Indication: PRODUCT USED FOR UNKNOWN INDICATION
     Dosage: UNK (LONG-TERM)
     Route: 065
  3. BISOPROLOL [Concomitant]
     Active Substance: BISOPROLOL
     Indication: PRODUCT USED FOR UNKNOWN INDICATION
     Dosage: UNK (LONG-TERM)
     Route: 065
  4. TILIDINE [Concomitant]
     Active Substance: TILIDINE
     Indication: PRODUCT USED FOR UNKNOWN INDICATION
     Dosage: UNK (LONG-TERM)
     Route: 065
  5. METAMIZOLE [Concomitant]
     Active Substance: METAMIZOLE
     Indication: PRODUCT USED FOR UNKNOWN INDICATION
     Dosage: UNK (LONG-TERM)
     Route: 065
  6. CITALOPRAM [Concomitant]
     Active Substance: CITALOPRAM HYDROBROMIDE
     Indication: DEPRESSION
     Dosage: UNK (LONG-TERM)
     Route: 065
  7. VANCOMYCIN [Suspect]
     Active Substance: VANCOMYCIN
     Indication: DEVICE RELATED INFECTION
     Dosage: UNK
     Route: 042
  8. PANTOPRAZOLE [Concomitant]
     Active Substance: PANTOPRAZOLE
     Indication: PRODUCT USED FOR UNKNOWN INDICATION
     Dosage: UNK (LONG-TERM)
     Route: 065
  9. ENALAPRIL [Concomitant]
     Active Substance: ENALAPRIL
     Indication: PRODUCT USED FOR UNKNOWN INDICATION
     Dosage: UNK (LONG-TERM)
     Route: 065
  10. QUETIAPINE. [Concomitant]
     Active Substance: QUETIAPINE
     Indication: PRODUCT USED FOR UNKNOWN INDICATION
     Dosage: UNK (LONG-TERM)
     Route: 065
  11. CERTOPARIN SODIUM [Concomitant]
     Active Substance: CERTOPARIN SODIUM
     Indication: PRODUCT USED FOR UNKNOWN INDICATION
     Dosage: UNK
     Route: 065
  12. ACETYLSALICYLIC ACID [Concomitant]
     Active Substance: ASPIRIN
     Indication: PRODUCT USED FOR UNKNOWN INDICATION
     Dosage: UNK (LONG-TERM)
     Route: 065

REACTIONS (11)
  - Linear IgA disease [Recovered/Resolved]
  - Dermatitis bullous [Recovered/Resolved]
  - Oral mucosa erosion [Recovered/Resolved]
  - Blister [Recovered/Resolved]
  - Macule [Recovered/Resolved]
  - Urticaria [Recovered/Resolved]
  - Pruritus [Recovered/Resolved]
  - Rash erythematous [Recovered/Resolved]
  - Skin lesion [Recovered/Resolved]
  - Skin plaque [Recovered/Resolved]
  - Drug hypersensitivity [Recovered/Resolved]
